FAERS Safety Report 7365255-2 (Version None)
Quarter: 2011Q1

REPORT INFORMATION
  Report Type: 
  Country: None (occurrence: None)
  Receive Date: 20110322
  Receipt Date: 20110311
  Transmission Date: 20110831
  Serious: Yes (Death, Hospitalization)
  Sender: FDA-Public Use
  Company Number: US-BIOGENIDEC-2011BI009349

PATIENT
  Age: 28 Year
  Sex: Female

DRUGS (2)
  1. VITAMIN D [Concomitant]
     Indication: PRODUCT USED FOR UNKNOWN INDICATION
  2. TYSABRI [Suspect]
     Indication: MULTIPLE SCLEROSIS
     Route: 042
     Dates: start: 20090513, end: 20110223

REACTIONS (5)
  - PYREXIA [None]
  - HEPATIC FAILURE [None]
  - HEPATITIS B [None]
  - DYSPNOEA [None]
  - ENDODONTIC PROCEDURE [None]
